FAERS Safety Report 4990798-6 (Version None)
Quarter: 2006Q2

REPORT INFORMATION
  Report Type: 
  Country: None (occurrence: None)
  Receive Date: 20060428
  Receipt Date: 20060417
  Transmission Date: 20061013
  Serious: Yes (Hospitalization)
  Sender: FDA-Public Use
  Company Number: 2006RL000133

PATIENT
  Age: 59 Year
  Sex: Male

DRUGS (2)
  1. PROPRANOLOL HYDROCHLORIDE [Suspect]
     Indication: HYPERTHYROIDISM
     Dosage: 29 MG; BID; PO
     Route: 048
  2. PROPYLTHIOURACIL [Concomitant]

REACTIONS (13)
  - BLOOD ALBUMIN DECREASED [None]
  - BLOOD CREATININE INCREASED [None]
  - BLOOD UREA INCREASED [None]
  - COLITIS ISCHAEMIC [None]
  - COLONIC POLYP [None]
  - DIARRHOEA HAEMORRHAGIC [None]
  - HAEMOGLOBIN DECREASED [None]
  - INTESTINAL ISCHAEMIA [None]
  - INTESTINAL ULCER [None]
  - MESENTERIC OCCLUSION [None]
  - MUCOSAL DRYNESS [None]
  - SKIN TURGOR DECREASED [None]
  - WHITE BLOOD CELL COUNT INCREASED [None]
